FAERS Safety Report 25145598 (Version 1)
Quarter: 2025Q2

REPORT INFORMATION
  Report Type: Spontaneous
  Country: US (occurrence: US)
  Receive Date: 20250401
  Receipt Date: 20250401
  Transmission Date: 20250717
  Serious: Yes (Other)
  Sender: GE HEALTHCARE
  Company Number: US-GE HEALTHCARE-2025CSU003926

PATIENT
  Age: 74 Year
  Sex: Female
  Weight: 58.5 kg

DRUGS (12)
  1. VIZAMYL [Suspect]
     Active Substance: FLUTEMETAMOL F-18
     Indication: Diagnostic procedure
     Route: 042
     Dates: start: 20250327
  2. METOPROLOL [Concomitant]
     Active Substance: METOPROLOL
  3. FAMOTIDINE [Concomitant]
     Active Substance: FAMOTIDINE
  4. LOPERAMIDE [Concomitant]
     Active Substance: LOPERAMIDE
  5. ZOLPIDEM [Concomitant]
     Active Substance: ZOLPIDEM TARTRATE
  6. FLUDROCORTISONE [Concomitant]
     Active Substance: FLUDROCORTISONE
  7. AZITHROMYCIN [Concomitant]
     Active Substance: AZITHROMYCIN
  8. EPINEPHRINE [Concomitant]
     Active Substance: EPINEPHRINE
  9. ROSUVASTATIN [Concomitant]
     Active Substance: ROSUVASTATIN
  10. RIFAPENTINE [Concomitant]
     Active Substance: RIFAPENTINE
  11. MONTELUKAST [Concomitant]
     Active Substance: MONTELUKAST
  12. HYDROCODONE [Concomitant]
     Active Substance: HYDROCODONE

REACTIONS (1)
  - Pruritus [Recovering/Resolving]

NARRATIVE: CASE EVENT DATE: 20250327
